FAERS Safety Report 7248617-3 (Version None)
Quarter: 2011Q1

REPORT INFORMATION
  Report Type: 
  Country: None (occurrence: None)
  Receive Date: 20110128
  Receipt Date: 20101209
  Transmission Date: 20110831
  Serious: Yes (Hospitalization)
  Sender: FDA-Public Use
  Company Number: US-BAYER-2010-004076

PATIENT
  Sex: Male
  Weight: 81 kg

DRUGS (2)
  1. METOPROLOL [Concomitant]
     Dosage: 25 MG, UNK
  2. RID MOUSSE [Suspect]
     Route: 061

REACTIONS (3)
  - CHEST DISCOMFORT [None]
  - DYSPNOEA [None]
  - ASTHMA [None]
